FAERS Safety Report 5960191-8 (Version None)
Quarter: 2008Q4

REPORT INFORMATION
  Report Type: 
  Country: None (occurrence: None)
  Receive Date: 20081120
  Receipt Date: 20081109
  Transmission Date: 20090506
  Serious: Yes (Death)
  Sender: FDA-Public Use
  Company Number: JP-BAXTER-2008BH010914

PATIENT
  Age: 17 Year
  Sex: Male

DRUGS (10)
  1. ENDOXAN BAXTER [Suspect]
     Indication: CHLOROMA
     Dosage: DOSE UNIT:UNKNOWN
     Route: 065
     Dates: start: 20080101
  2. CYTARABINE [Suspect]
     Indication: CHLOROMA
     Dosage: DOSE UNIT:UNKNOWN
     Route: 065
     Dates: start: 20080101
  3. CYTARABINE [Suspect]
     Indication: BONE MARROW CONDITIONING REGIMEN
     Dosage: DOSE UNIT:UNKNOWN
     Route: 065
     Dates: start: 20080101
  4. CYTARABINE [Suspect]
     Dosage: DOSE UNIT:UNKNOWN
     Route: 065
  5. CYTARABINE [Suspect]
     Dosage: DOSE UNIT:UNKNOWN
     Route: 065
  6. DAUNORUBICIN [Suspect]
     Indication: CHLOROMA
     Dosage: DOSE UNIT:UNKNOWN
     Route: 065
  7. MITOXANTRONE [Suspect]
     Indication: CHLOROMA
     Dosage: DOSE UNIT:UNKNOWN
     Route: 065
  8. IDARUBICIN HYDROCHLORIDE [Suspect]
     Indication: DRUG USE FOR UNKNOWN INDICATION
     Dosage: DOSE UNIT:UNKNOWN
     Route: 065
  9. ENOCITABINE [Concomitant]
     Indication: CHLOROMA
  10. ETOPOSIDE [Concomitant]
     Indication: CHLOROMA

REACTIONS (3)
  - CARDIOMYOPATHY [None]
  - LEUKAEMOID REACTION [None]
  - VENOOCCLUSIVE LIVER DISEASE [None]
